FAERS Safety Report 8854263 (Version 1)
Quarter: 2012Q4

REPORT INFORMATION
  Report Type: Report from Study
  Country: US (occurrence: US)
  Receive Date: 20121023
  Receipt Date: 20121023
  Transmission Date: 20130627
  Serious: No
  Sender: FDA-Public Use
  Company Number: US-VERTEX PHARMACEUTICAL INC.-2012-023026

PATIENT
  Sex: Female
  Weight: 90 kg

DRUGS (10)
  1. VX-950 [Suspect]
     Indication: HEPATITIS C
     Dosage: 750 mg, tid
     Route: 048
  2. PEGASYS [Concomitant]
  3. WELLBUTRIN [Concomitant]
     Dosage: 100 mg, UNK
  4. MILK THISTLE [Concomitant]
  5. LIPOIC ACID [Concomitant]
     Dosage: 150 mg, UNK
  6. YEAST GARD [Concomitant]
  7. COD LIVER OIL [Concomitant]
  8. VALERIAN 2000 COMPLEX [Concomitant]
     Dosage: 500 mg, UNK
  9. LUTEIN                             /01638501/ [Concomitant]
     Dosage: 15-0.7 mg
  10. IBUPROFEN [Concomitant]
     Dosage: 40 mg /mL

REACTIONS (2)
  - Rash [Unknown]
  - Erythema [Unknown]
